FAERS Safety Report 4582543-3 (Version None)
Quarter: 2005Q1

REPORT INFORMATION
  Report Type: 
  Country: None (occurrence: None)
  Receive Date: 20050215
  Receipt Date: 20050203
  Transmission Date: 20050727
  Serious: Yes (Hospitalization)
  Sender: FDA-Public Use
  Company Number: FR-JNJFOC-20050202592

PATIENT
  Age: 83 Year
  Sex: Female

DRUGS (13)
  1. TOPALGIC [Suspect]
     Indication: DRUG USE FOR UNKNOWN INDICATION
     Dosage: STOP DATE 27-DEC-2004 OR 30-DEC-2004 (CONFLICTING DATA)
     Route: 049
  2. TRIFLUCAN [Suspect]
     Indication: DRUG USE FOR UNKNOWN INDICATION
     Route: 049
  3. ECAZIDE [Suspect]
     Route: 049
  4. ECAZIDE [Suspect]
     Indication: DRUG USE FOR UNKNOWN INDICATION
     Route: 049
  5. TAHOR [Suspect]
     Indication: DRUG USE FOR UNKNOWN INDICATION
     Route: 049
  6. COVERSYL [Suspect]
     Indication: DRUG USE FOR UNKNOWN INDICATION
     Route: 049
  7. OMEPRAZOLE [Concomitant]
     Route: 049
  8. DUPHALAC [Concomitant]
     Route: 065
  9. STABLON [Concomitant]
     Route: 065
  10. LANTUS [Concomitant]
     Route: 065
  11. LANSOYL [Concomitant]
     Route: 065
  12. PRAXILENE [Concomitant]
     Route: 065
  13. DETENSIEL [Concomitant]
     Route: 065

REACTIONS (11)
  - BLOOD POTASSIUM DECREASED [None]
  - CEREBROVASCULAR ACCIDENT [None]
  - GENERAL PHYSICAL CONDITION [None]
  - GENERAL PHYSICAL HEALTH DETERIORATION [None]
  - HYPERKALAEMIA [None]
  - HYPONATRAEMIA [None]
  - MYOCARDIAL INFARCTION [None]
  - RESPIRATORY TRACT INFECTION [None]
  - SKIN INFECTION [None]
  - SUPERINFECTION [None]
  - URINARY TRACT INFECTION [None]
